FAERS Safety Report 17836900 (Version 1)
Quarter: 2020Q2

REPORT INFORMATION
  Report Type: Spontaneous
  Country: AR (occurrence: AR)
  Receive Date: 20200529
  Receipt Date: 20200529
  Transmission Date: 20200714
  Serious: Yes (Other)
  Sender: FDA-Public Use
  Company Number: AR-PFIZER INC-2020206299

PATIENT
  Age: 8 Year
  Sex: Female

DRUGS (3)
  1. GENOTROPIN [Suspect]
     Active Substance: SOMATROPIN
     Indication: SHORT STATURE
     Dosage: UNK, DAILY (0.6 TO 1 MG)
     Dates: start: 20190227
  2. GENOTROPIN [Suspect]
     Active Substance: SOMATROPIN
     Dosage: UNK
     Dates: end: 202002
  3. GENOTROPIN [Suspect]
     Active Substance: SOMATROPIN
     Indication: BLOOD GLUCOSE ABNORMAL
     Dosage: UNK
     Dates: end: 201910

REACTIONS (9)
  - Loss of consciousness [Unknown]
  - Intracranial pressure increased [Unknown]
  - Headache [Recovered/Resolved]
  - Fear of injection [Unknown]
  - Stress [Unknown]
  - Syncope [Unknown]
  - Ocular discomfort [Unknown]
  - Pain in extremity [Unknown]
  - Discomfort [Unknown]

NARRATIVE: CASE EVENT DATE: 201910
